FAERS Safety Report 7316049-5 (Version None)
Quarter: 2011Q1

REPORT INFORMATION
  Report Type: 
  Country: None (occurrence: None)
  Receive Date: 20110225
  Receipt Date: 20110222
  Transmission Date: 20110831
  Serious: Yes (Other)
  Sender: FDA-Public Use
  Company Number: PHEH2006US04723

PATIENT
  Sex: Female
  Weight: 92.97 kg

DRUGS (20)
  1. GLYBURIDE [Concomitant]
     Dosage: 2.5 MG, UNK
  2. VASOTEC [Concomitant]
     Dosage: UNK, UNK
  3. LIPITOR [Concomitant]
     Dosage: 10 MG, UNK
     Dates: start: 20050208
  4. DIGOXIN [Concomitant]
     Dosage: 125 UG, UNK
  5. HYDROCHLOROTHIAZIDE [Concomitant]
     Dosage: 25 MG, UNK
  6. ZOMETA [Suspect]
     Indication: METASTASES TO BONE
     Dosage: 4MG/100CC NS QMONTH
     Dates: start: 20030629, end: 20050810
  7. ENALAPRIL MALEATE [Concomitant]
     Dosage: 10 MG, UNK
  8. GLUCOVANCE [Concomitant]
  9. BISPHOSPHONATES [Concomitant]
  10. LASIX [Concomitant]
  11. NEXIUM [Concomitant]
     Dosage: 40 MG, UNK
  12. TRICOR [Concomitant]
     Dosage: 145 MG, UNK
  13. DIGOXIN [Concomitant]
  14. VALIUM [Concomitant]
  15. PERCOCET [Concomitant]
     Indication: BACK PAIN
  16. PRILOSEC [Concomitant]
  17. RETIN-A [Concomitant]
  18. AREDIA [Suspect]
     Indication: METASTASES TO BONE
     Dosage: 30 MG
     Dates: start: 20021119, end: 20030527
  19. FEMARA [Concomitant]
     Dosage: 2.5 MG, QD
     Dates: start: 20041116
  20. COREG [Concomitant]
     Dosage: 25 MG, UNK

REACTIONS (42)
  - OSTEONECROSIS OF JAW [None]
  - PAIN [None]
  - GINGIVAL DISORDER [None]
  - DENTAL CARIES [None]
  - TOOTH FRACTURE [None]
  - PATHOLOGICAL FRACTURE [None]
  - MUSCULOSKELETAL PAIN [None]
  - FIBROSIS [None]
  - OSTEOMYELITIS [None]
  - DEFORMITY [None]
  - METASTASES TO BONE [None]
  - RIB FRACTURE [None]
  - FATIGUE [None]
  - ORAL DISCOMFORT [None]
  - DENTAL DISCOMFORT [None]
  - EATING DISORDER SYMPTOM [None]
  - BIOPSY CHEST WALL ABNORMAL [None]
  - PLEURAL EFFUSION [None]
  - KYPHOSIS [None]
  - TOOTH LOSS [None]
  - ORAL INFECTION [None]
  - PAIN IN JAW [None]
  - TOOTHACHE [None]
  - BLOOD UREA NITROGEN/CREATININE RATIO INCREASED [None]
  - LIFE EXPECTANCY SHORTENED [None]
  - GINGIVAL ULCERATION [None]
  - LOOSE TOOTH [None]
  - PERIODONTAL DISEASE [None]
  - TENDERNESS [None]
  - BONE DISORDER [None]
  - METASTASES TO LYMPH NODES [None]
  - BLOOD GLUCOSE INCREASED [None]
  - EMOTIONAL DISTRESS [None]
  - NEOPLASM MALIGNANT [None]
  - PANIC ATTACK [None]
  - FISTULA [None]
  - IMPAIRED HEALING [None]
  - TOOTH DISORDER [None]
  - LUNG INFILTRATION [None]
  - OESOPHAGITIS [None]
  - LYMPHOEDEMA [None]
  - BILIARY DILATATION [None]
